FAERS Safety Report 16629089 (Version 1)
Quarter: 2019Q3

REPORT INFORMATION
  Report Type: Spontaneous
  Country: US (occurrence: US)
  Receive Date: 20190725
  Receipt Date: 20190725
  Transmission Date: 20191004
  Serious: Yes (Other)
  Sender: FDA-Public Use
  Company Number: US-STRIDES ARCOLAB LIMITED-2018SP008145

PATIENT
  Age: 9 Year
  Sex: Female

DRUGS (12)
  1. SULFAMETHOXAZOLE AND TRIMETHOPRIM [Concomitant]
     Active Substance: SULFAMETHOXAZOLE\TRIMETHOPRIM
     Indication: CORNEAL TRANSPLANT
     Dosage: SINGLE STRENGTH
     Route: 065
  2. LEVOFLOXACIN. [Concomitant]
     Active Substance: LEVOFLOXACIN
     Indication: CORNEAL TRANSPLANT
     Dosage: UNK
     Route: 065
  3. VALGANCICLOVIR. [Concomitant]
     Active Substance: VALGANCICLOVIR
     Indication: CORNEAL TRANSPLANT
     Dosage: UNK
     Route: 065
  4. PREDNISOLONE. [Suspect]
     Active Substance: PREDNISOLONE
     Indication: CORNEAL TRANSPLANT
     Dosage: 1 MG/KG, UNKNOWN, FOR ONE TO THREE MONTHS
     Route: 048
  5. CYCLOSPORINE. [Concomitant]
     Active Substance: CYCLOSPORINE
     Indication: CORNEAL TRANSPLANT
     Dosage: UNK
     Route: 065
  6. TOBRAMYCIN. [Concomitant]
     Active Substance: TOBRAMYCIN
     Indication: ULCERATIVE KERATITIS
     Dosage: UNK
     Route: 065
  7. MYCOPHENOLATE MOFETIL. [Suspect]
     Active Substance: MYCOPHENOLATE MOFETIL
     Indication: CORNEAL TRANSPLANT
     Dosage: 1 G, BID, FOR AT LEAST 18 MONTHS AND THEN A SLOW TAPER
     Route: 048
  8. DIFLUPREDNATE [Concomitant]
     Active Substance: DIFLUPREDNATE
     Indication: OCULAR SURFACE DISEASE
     Dosage: UNK
     Route: 061
  9. VANCOMYCIN [Concomitant]
     Active Substance: VANCOMYCIN
     Indication: ULCERATIVE KERATITIS
     Dosage: UNK
     Route: 065
  10. DIFLUPREDNATE [Concomitant]
     Active Substance: DIFLUPREDNATE
     Dosage: TAPPERED EVERY HOUR
     Route: 061
  11. TACROLIMUS. [Suspect]
     Active Substance: TACROLIMUS
     Indication: CORNEAL TRANSPLANT
     Dosage: 4 MG, BID
     Route: 048
  12. NEOMYCIN AND POLYMYXIN B SULFATES AND DEXAMET [Concomitant]
     Indication: NEOVASCULARISATION
     Dosage: UNK, TWICE DAILY
     Route: 065

REACTIONS (2)
  - Off label use [Unknown]
  - Neutropenia [Unknown]
